FAERS Safety Report 21156004 (Version 1)
Quarter: 2022Q3

REPORT INFORMATION
  Report Type: Spontaneous
  Country: US (occurrence: None)
  Receive Date: 20220730
  Receipt Date: 20220730
  Transmission Date: 20221027
  Serious: Yes (Death, Hospitalization)
  Sender: FDA-Public Use
  Company Number: None

PATIENT
  Age: 59 Year
  Sex: Female
  Weight: 88 kg

DRUGS (3)
  1. CYCLOPHOSPHAMIDE [Suspect]
     Active Substance: CYCLOPHOSPHAMIDE
     Dates: end: 20121017
  2. DOXORUBICIN HYDROCHLORIDE [Suspect]
     Active Substance: DOXORUBICIN HYDROCHLORIDE
     Dates: end: 20121017
  3. TAXOL [Suspect]
     Active Substance: PACLITAXEL
     Dates: end: 20130123

REACTIONS (9)
  - Arthralgia [None]
  - Myelodysplastic syndrome [None]
  - Leukaemia [None]
  - Pancytopenia [None]
  - Fatigue [None]
  - Back pain [None]
  - Asthenia [None]
  - Breast cancer [None]
  - Disease progression [None]

NARRATIVE: CASE EVENT DATE: 20180504
